FAERS Safety Report 13422311 (Version 1)
Quarter: 2017Q2

REPORT INFORMATION
  Report Type: Spontaneous
  Country: US (occurrence: US)
  Receive Date: 20170408
  Receipt Date: 20170408
  Transmission Date: 20170830
  Serious: Yes (Life-Threatening, Hospitalization)
  Sender: FDA-Public Use
  Company Number: None

PATIENT
  Age: 27 Year
  Sex: Male

DRUGS (2)
  1. TIANEPTINE [Suspect]
     Active Substance: TIANEPTINE
     Indication: DRUG USE DISORDER
     Dates: start: 20150905, end: 20150905
  2. ALCOHOL. [Concomitant]
     Active Substance: ALCOHOL

REACTIONS (2)
  - Accidental overdose [None]
  - Respiratory depression [None]

NARRATIVE: CASE EVENT DATE: 20150905
